FAERS Safety Report 8036483-8 (Version None)
Quarter: 2012Q1

REPORT INFORMATION
  Report Type: 
  Country: None (occurrence: None)
  Receive Date: 20120109
  Receipt Date: 20120105
  Transmission Date: 20120608
  Serious: Yes (Life-Threatening)
  Sender: FDA-Public Use
  Company Number: 2011SP056590

PATIENT
  Age: 31 Year
  Sex: Female
  Weight: 88 kg

DRUGS (7)
  1. CITALOPRAM HYDROBROMIDE [Concomitant]
  2. PROCHLORPERAZINE [Concomitant]
  3. NEXPLANON [Suspect]
     Indication: CONTRACEPTION
     Dosage: 68 MG; SBDE
     Route: 059
     Dates: start: 20111024, end: 20111125
  4. ALBUTEROL SULFATE AUTOHALER [Concomitant]
  5. AMOXICILLIN [Concomitant]
  6. ERYTHROMYCIN [Concomitant]
  7. NICOTINE [Concomitant]

REACTIONS (3)
  - INTRACRANIAL PRESSURE INCREASED [None]
  - HEADACHE [None]
  - VISION BLURRED [None]
